FAERS Safety Report 26064387 (Version 1)
Quarter: 2025Q4

REPORT INFORMATION
  Report Type: Spontaneous
  Country: US (occurrence: None)
  Receive Date: 20251118
  Receipt Date: 20251118
  Transmission Date: 20260117
  Serious: Yes (Other)
  Sender: FDA-CTU
  Company Number: None

PATIENT
  Age: 53 Year
  Sex: Female
  Weight: 48.15 kg

DRUGS (4)
  1. LEVULAN KERASTICK [Suspect]
     Active Substance: AMINOLEVULINIC ACID HYDROCHLORIDE
     Indication: Actinic keratosis
     Route: 061
     Dates: start: 20251110
  2. ESTRADIOL TRANSDERMAL SYSTEM [Concomitant]
     Active Substance: ESTRADIOL
  3. progesterone oral [Concomitant]
  4. NP THYROID [Concomitant]
     Active Substance: LEVOTHYROXINE\LIOTHYRONINE

REACTIONS (4)
  - Burns second degree [None]
  - Crying [None]
  - Haemorrhage [None]
  - Skin weeping [None]

NARRATIVE: CASE EVENT DATE: 20251110
